FAERS Safety Report 16000045 (Version 2)
Quarter: 2019Q1

REPORT INFORMATION
  Report Type: Spontaneous
  Country: US (occurrence: US)
  Receive Date: 20190225
  Receipt Date: 20190305
  Transmission Date: 20190418
  Serious: Yes (Other)
  Sender: FDA-Public Use
  Company Number: US-RECKITT BENCKISER HEALTHCARE INT LIMITED-RB-82096-2019

PATIENT
  Age: 79 Year
  Sex: Male

DRUGS (2)
  1. ELIQUIS [Concomitant]
     Active Substance: APIXABAN
     Indication: THROMBOSIS
     Dosage: UNK
     Route: 065
     Dates: end: 201902
  2. MUCINEX DM [Suspect]
     Active Substance: DEXTROMETHORPHAN HYDROBROMIDE\GUAIFENESIN
     Indication: LOWER RESPIRATORY TRACT INFECTION
     Dosage: 600 MILLIGRAM, BID
     Route: 065
     Dates: start: 20190208, end: 20190213

REACTIONS (1)
  - Urinary bladder haemorrhage [Not Recovered/Not Resolved]

NARRATIVE: CASE EVENT DATE: 20190209
